FAERS Safety Report 5537718-3 (Version None)
Quarter: 2007Q4

REPORT INFORMATION
  Report Type: 
  Country: None (occurrence: None)
  Receive Date: 20071207
  Receipt Date: 20071127
  Transmission Date: 20080405
  Serious: Yes (Hospitalization)
  Sender: FDA-Public Use
  Company Number: JP-JNJFOC-20071105428

PATIENT
  Sex: Female

DRUGS (22)
  1. CRAVIT [Suspect]
     Indication: CYSTITIS
     Route: 048
  2. PENTAGIN [Suspect]
     Indication: PAIN OF SKIN
     Route: 042
  3. POLARAMINE [Suspect]
     Indication: PRURITUS
     Route: 048
  4. LAMISIL [Suspect]
     Indication: FUNGAL SKIN INFECTION
     Route: 048
  5. VOLTAREN [Suspect]
     Indication: DERMATITIS
     Route: 048
  6. ATARAX [Concomitant]
     Indication: PRURITUS
     Route: 050
  7. PREDONINE [Concomitant]
     Indication: DERMATITIS EXFOLIATIVE
     Route: 048
  8. BEZATOL SR [Concomitant]
     Indication: HYPERLIPIDAEMIA
     Route: 048
  9. FAMOTIDINE [Concomitant]
     Indication: GASTRITIS
     Route: 048
  10. EBASTEL [Concomitant]
     Indication: ASTHMA
     Route: 048
  11. BLOPRESS [Concomitant]
     Indication: HYPERTENSION
     Route: 048
  12. THEO-DUR [Concomitant]
     Indication: ASTHMA
     Route: 048
  13. HALCION [Concomitant]
     Indication: DEPRESSION
     Route: 048
  14. HALCION [Concomitant]
     Indication: INSOMNIA
     Route: 048
  15. SEROQUEL [Concomitant]
     Indication: DEPRESSION
     Route: 048
  16. SEROQUEL [Concomitant]
     Indication: INSOMNIA
     Route: 048
  17. SILECE [Concomitant]
     Indication: DEPRESSION
     Route: 048
  18. SILECE [Concomitant]
     Indication: INSOMNIA
     Route: 048
  19. SEPAZON [Concomitant]
     Indication: DEPRESSION
     Route: 048
  20. SEPAZON [Concomitant]
     Indication: INSOMNIA
     Route: 048
  21. TOLEDOMIN [Concomitant]
     Indication: DEPRESSION
     Route: 048
  22. TOLEDOMIN [Concomitant]
     Indication: INSOMNIA
     Route: 048

REACTIONS (3)
  - BLOOD TEST ABNORMAL [None]
  - HEPATIC FUNCTION ABNORMAL [None]
  - RENAL IMPAIRMENT [None]
